FAERS Safety Report 5507372-5 (Version None)
Quarter: 2007Q4

REPORT INFORMATION
  Report Type: 
  Country: None (occurrence: None)
  Receive Date: 20071106
  Receipt Date: 20071026
  Transmission Date: 20080405
  Serious: Yes (Other)
  Sender: FDA-Public Use
  Company Number: IT-WYE-H00899007

PATIENT
  Age: 73 Year
  Sex: Female

DRUGS (6)
  1. CORDARONE [Suspect]
     Indication: ATRIAL FIBRILLATION
     Route: 048
     Dates: start: 20060501, end: 20061101
  2. CORDARONE [Suspect]
     Route: 048
     Dates: start: 20070301
  3. SIMVASTATIN [Concomitant]
     Indication: HYPERCHOLESTEROLAEMIA
     Dosage: UNSPECIFIED
  4. METOPROLOL [Concomitant]
     Dosage: UNSPECIFIED
  5. RAMIPRIL [Concomitant]
     Indication: HYPERTENSION
     Dosage: UNSPECIFIED
  6. FUROSEMIDE [Concomitant]
     Dosage: UNSPECIFIED

REACTIONS (2)
  - PNEUMONIA [None]
  - PULMONARY FIBROSIS [None]
